FAERS Safety Report 9284944 (Version 2)
Quarter: 2013Q4

REPORT INFORMATION
  Report Type: Report from Study
  Country: JP (occurrence: JP)
  Receive Date: 20130513
  Receipt Date: 20131211
  Transmission Date: 20140711
  Serious: Yes (Death)
  Sender: FDA-Public Use
  Company Number: JP-ROCHE-1223301

PATIENT
  Age: 77 Year
  Sex: Male
  Weight: 51 kg

DRUGS (2)
  1. METHOXY POLYETHYLENE GLYCOL-EPOETIN BETA [Suspect]
     Indication: NEPHROGENIC ANAEMIA
     Route: 042
     Dates: start: 20120310, end: 20121117
  2. FESIN (JAPAN) [Concomitant]
     Route: 042
     Dates: start: 20120714, end: 20120807

REACTIONS (1)
  - Intestinal obstruction [Fatal]
